FAERS Safety Report 8781684 (Version 1)
Quarter: 2012Q4

REPORT INFORMATION
  Report Type: Report from Study
  Country: US (occurrence: US)
  Receive Date: 20120913
  Receipt Date: 20120913
  Transmission Date: 20130627
  Serious: No
  Sender: FDA-Public Use
  Company Number: US-VERTEX PHARMACEUTICAL INC.-AE-2012-007766

PATIENT
  Sex: Female

DRUGS (3)
  1. INCIVEK [Suspect]
     Indication: HEPATITIS C
     Route: 048
     Dates: start: 20111202, end: 20120224
  2. PEGASYS [Concomitant]
     Indication: HEPATITIS C
     Dates: start: 20111202, end: 20120420
  3. RIBAVIRIN [Concomitant]
     Indication: HEPATITIS C
     Dates: start: 20111202, end: 20120420

REACTIONS (7)
  - Retinal tear [Unknown]
  - Mental status changes [Not Recovered/Not Resolved]
  - Dysphonia [Not Recovered/Not Resolved]
  - Agoraphobia [Unknown]
  - Visual impairment [Not Recovered/Not Resolved]
  - Alopecia [Not Recovered/Not Resolved]
  - Weight decreased [Not Recovered/Not Resolved]
